FAERS Safety Report 4318027-7 (Version None)
Quarter: 2004Q1

REPORT INFORMATION
  Report Type: 
  Country: None (occurrence: None)
  Receive Date: 20040317
  Receipt Date: 20040227
  Transmission Date: 20041129
  Serious: Yes (Death)
  Sender: FDA-Public Use
  Company Number: 200410637JP

PATIENT
  Age: 80 Year
  Sex: Male

DRUGS (11)
  1. ARAVA [Suspect]
     Indication: RHEUMATOID ARTHRITIS
     Route: 048
     Dates: start: 20031122, end: 20040225
  2. AZULFIDINE [Concomitant]
     Indication: RHEUMATOID ARTHRITIS
     Route: 048
     Dates: end: 20031121
  3. LOXONIN [Concomitant]
     Indication: RHEUMATOID ARTHRITIS
     Route: 048
     Dates: end: 20031121
  4. MUCOSTA [Concomitant]
     Indication: PROPHYLAXIS
     Route: 048
     Dates: end: 20031121
  5. ALFAROL [Concomitant]
     Indication: OSTEOPOROSIS
     Route: 048
     Dates: end: 20031121
  6. PREDONINE [Concomitant]
     Indication: RHEUMATOID ARTHRITIS
     Route: 048
     Dates: end: 20040225
  7. GASTER [Concomitant]
     Indication: GASTRITIS
     Route: 048
     Dates: end: 20040225
  8. HALCION [Concomitant]
     Indication: INSOMNIA
     Route: 048
     Dates: end: 20040225
  9. ETODOLAC [Concomitant]
     Indication: RHEUMATOID ARTHRITIS
     Route: 048
     Dates: start: 20031122, end: 20040225
  10. TAMIFLU [Concomitant]
     Indication: INFLUENZA
     Route: 048
     Dates: start: 20040213, end: 20040218
  11. FAROM [Concomitant]
     Indication: INFECTION PROPHYLAXIS
     Route: 048
     Dates: start: 20040213, end: 20040225

REACTIONS (18)
  - BLOOD CALCIUM DECREASED [None]
  - BLOOD LACTATE DEHYDROGENASE DECREASED [None]
  - BLOOD LACTATE DEHYDROGENASE INCREASED [None]
  - BLOOD POTASSIUM INCREASED [None]
  - BLOOD UREA INCREASED [None]
  - C-REACTIVE PROTEIN INCREASED [None]
  - CARDIO-RESPIRATORY ARREST [None]
  - CHOKING [None]
  - COMA [None]
  - HAEMATOCRIT DECREASED [None]
  - HAEMOGLOBIN DECREASED [None]
  - INFLUENZA [None]
  - INJURY ASPHYXIATION [None]
  - MEAN CELL HAEMOGLOBIN CONCENTRATION [None]
  - MEAN CELL HAEMOGLOBIN CONCENTRATION INCREASED [None]
  - NEUTROPHIL COUNT INCREASED [None]
  - PUPIL FIXED [None]
  - RED BLOOD CELL COUNT DECREASED [None]
